FAERS Safety Report 5376960-1 (Version None)
Quarter: 2007Q3

REPORT INFORMATION
  Report Type: 
  Country: None (occurrence: None)
  Receive Date: 20070703
  Receipt Date: 20070621
  Transmission Date: 20080115
  Serious: Yes (Other)
  Sender: FDA-Public Use
  Company Number: HQWYE757022JUN07

PATIENT
  Sex: Female

DRUGS (1)
  1. EFFEXOR [Suspect]
     Dosage: 75 MG EVERY 1 TOT
     Route: 048

REACTIONS (2)
  - FEELING ABNORMAL [None]
  - TACHYCARDIA [None]
